FAERS Safety Report 14144074 (Version 2)
Quarter: 2018Q1

REPORT INFORMATION
  Report Type: Spontaneous
  Country: US (occurrence: US)
  Receive Date: 20171031
  Receipt Date: 20180306
  Transmission Date: 20180508
  Serious: No
  Sender: FDA-Public Use
  Company Number: PHEH2017US034900

PATIENT
  Sex: Female

DRUGS (2)
  1. AFINITOR [Suspect]
     Active Substance: EVEROLIMUS
     Indication: NEUROFIBROMATOSIS
     Dosage: 5 MG, QD
     Route: 048
     Dates: start: 20160415
  2. AFINITOR [Suspect]
     Active Substance: EVEROLIMUS
     Indication: OPTIC NERVE NEOPLASM

REACTIONS (3)
  - Product use in unapproved indication [Not Recovered/Not Resolved]
  - Malaise [Unknown]
  - Nasopharyngitis [Unknown]
